FAERS Safety Report 8535949-1 (Version None)
Quarter: 2012Q3

REPORT INFORMATION
  Report Type: 
  Country: None (occurrence: None)
  Receive Date: 20120725
  Receipt Date: 20120723
  Transmission Date: 20120928
  Serious: Yes (Hospitalization, Other)
  Sender: FDA-Public Use
  Company Number: PHEH2005US10713

PATIENT
  Sex: Male

DRUGS (30)
  1. PROCRIT [Concomitant]
  2. MORPHINE SULFATE [Concomitant]
     Dates: start: 20040401, end: 20040601
  3. LEVAQUIN [Concomitant]
  4. AREDIA [Suspect]
     Dosage: 90 MG, QMO
     Dates: start: 19960101, end: 20011214
  5. GERITOL /USA/ [Concomitant]
     Dates: end: 20040701
  6. PERCOCET [Concomitant]
     Route: 048
     Dates: start: 20040511
  7. PENICILLIN V [Concomitant]
     Route: 048
     Dates: start: 20031001, end: 20040601
  8. ALKERAN [Concomitant]
  9. ADVIL [Concomitant]
  10. NEXIUM [Concomitant]
     Dosage: 40 MG
     Dates: end: 20040701
  11. CHEMOTHERAPEUTICS NOS [Concomitant]
  12. DARVOCET-N 50 [Concomitant]
  13. THALIDOMIDE [Concomitant]
     Indication: MULTIPLE MYELOMA
     Dates: start: 20040201
  14. DECADRON [Concomitant]
     Indication: MULTIPLE MYELOMA
     Dates: start: 20040201
  15. WARFARIN SODIUM [Concomitant]
     Indication: DEEP VEIN THROMBOSIS
  16. CLARITIN [Concomitant]
  17. PREDNISONE [Concomitant]
     Indication: MULTIPLE MYELOMA
  18. MELPHALAN HYDROCHLORIDE [Concomitant]
     Indication: MULTIPLE MYELOMA
  19. DECADRON [Concomitant]
     Dosage: PULSE Q2WKS
     Dates: start: 20041001
  20. MEGACE [Concomitant]
     Indication: DECREASED APPETITE
  21. SENNA-MINT WAF [Concomitant]
  22. METOCLOPRAMIDE [Concomitant]
  23. IMMUNE GLOBULIN NOS [Concomitant]
  24. ROBITUSSIN ^ROBINS^ [Concomitant]
  25. DECADRON [Concomitant]
     Dosage: 100 MG, QD
     Dates: start: 20040601
  26. PROTONIX [Concomitant]
  27. TYLENOL [Concomitant]
     Route: 048
     Dates: end: 20040701
  28. ZOMETA [Suspect]
     Indication: MULTIPLE MYELOMA
     Dosage: 4 MG, QMO
     Dates: start: 20020208, end: 20050421
  29. THALIDOMIDE [Concomitant]
     Dosage: 200 MG, QD
     Dates: start: 20040601
  30. HYDROCODONE BITARTRATE + ACETAMINOPHEN [Concomitant]
     Route: 048
     Dates: end: 20040701

REACTIONS (60)
  - SWELLING [None]
  - PATHOLOGICAL FRACTURE [None]
  - WEIGHT DECREASED [None]
  - CARDIAC FAILURE CONGESTIVE [None]
  - ABSCESS [None]
  - BONE DISORDER [None]
  - PAROTID GLAND ENLARGEMENT [None]
  - ORAL INFECTION [None]
  - DECREASED APPETITE [None]
  - NEOPLASM MALIGNANT [None]
  - IMMUNODEFICIENCY [None]
  - SPINAL COMPRESSION FRACTURE [None]
  - PRODUCTIVE COUGH [None]
  - PAROTITIS [None]
  - OSTEONECROSIS OF JAW [None]
  - PYREXIA [None]
  - SPINAL DISORDER [None]
  - CONSTIPATION [None]
  - DECUBITUS ULCER [None]
  - ASTHENIA [None]
  - MUSCULOSKELETAL CHEST PAIN [None]
  - DENTAL CARIES [None]
  - RHINORRHOEA [None]
  - BLOOD GLUCOSE INCREASED [None]
  - VITREOUS FLOATERS [None]
  - EARLY SATIETY [None]
  - SINUSITIS [None]
  - VISUAL ACUITY REDUCED [None]
  - CATARACT [None]
  - CHORIORETINAL DISORDER [None]
  - DERMATITIS [None]
  - DEEP VEIN THROMBOSIS [None]
  - PERSONALITY CHANGE [None]
  - OSTEOMYELITIS [None]
  - INFLAMMATION [None]
  - DENTURE WEARER [None]
  - UPPER RESPIRATORY TRACT INFECTION [None]
  - CORONARY ARTERY DISEASE [None]
  - PAIN IN JAW [None]
  - TRISMUS [None]
  - ACTINOMYCOSIS [None]
  - METASTASES TO BONE [None]
  - BRONCHITIS [None]
  - BACK PAIN [None]
  - CHORIORETINOPATHY [None]
  - BLINDNESS [None]
  - HAEMATOCRIT DECREASED [None]
  - HAEMATOPOIETIC NEOPLASM [None]
  - ENDOTRACHEAL INTUBATION COMPLICATION [None]
  - PURULENCE [None]
  - SOFT TISSUE INFLAMMATION [None]
  - STAPHYLOCOCCAL INFECTION [None]
  - METASTASES TO SPINE [None]
  - BONE PAIN [None]
  - ANAEMIA [None]
  - HAEMOGLOBIN DECREASED [None]
  - TOOTH DEPOSIT [None]
  - RETINAL DISORDER [None]
  - CARDIOMYOPATHY [None]
  - PNEUMOTHORAX [None]
